FAERS Safety Report 17488366 (Version 1)
Quarter: 2020Q1

REPORT INFORMATION
  Report Type: Spontaneous
  Country: US (occurrence: US)
  Receive Date: 20200302
  Receipt Date: 20200302
  Transmission Date: 20200409
  Serious: Yes (Hospitalization)
  Sender: FDA-Public Use
  Company Number: None

PATIENT
  Age: 69 Year
  Sex: Female

DRUGS (8)
  1. HUMIRA [Suspect]
     Active Substance: ADALIMUMAB
     Indication: PSORIASIS
     Dosage: ?          OTHER FREQUENCY:EVERY OTHER WEEK;?
     Route: 058
     Dates: start: 20180205
  2. LORAZEPAM TAB 0.5 MG [Concomitant]
  3. HYDROCO/APAP TAB 10-325 MG [Concomitant]
  4. SUMATRIPTAN TAB 100 MG [Concomitant]
  5. DIVALPROEX CAP 125 MG [Concomitant]
  6. ROSUVASTATIN TAB 10 MG [Concomitant]
  7. CIPROFLOXACIN TAB 500 MG [Concomitant]
     Active Substance: CIPROFLOXACIN
  8. CELECOXIB TAB 500 MG [Concomitant]

REACTIONS (3)
  - Pain [None]
  - Gastric disorder [None]
  - Diarrhoea [None]

NARRATIVE: CASE EVENT DATE: 20200228
